FAERS Safety Report 7832442-6 (Version None)
Quarter: 2011Q4

REPORT INFORMATION
  Report Type: 
  Country: None (occurrence: None)
  Receive Date: 20111023
  Receipt Date: 20110915
  Transmission Date: 20120403
  Serious: Yes (Other)
  Sender: FDA-Public Use
  Company Number: PHEH2011US04265

PATIENT

DRUGS (1)
  1. AREDIA [Suspect]
     Indication: OSTEOPENIA

REACTIONS (1)
  - OSTEONECROSIS [None]
